FAERS Safety Report 12457840 (Version 2)
Quarter: 2017Q1

REPORT INFORMATION
  Report Type: Spontaneous
  Country: JP (occurrence: JP)
  Receive Date: 20160611
  Receipt Date: 20170105
  Transmission Date: 20170428
  Serious: Yes (Death)
  Sender: FDA-Public Use
  Company Number: JP-TEVA-666147ISR

PATIENT
  Age: 68 Year
  Sex: Male
  Weight: 49 kg

DRUGS (7)
  1. E-FEN BUCCAL [Suspect]
     Active Substance: FENTANYL CITRATE
     Dosage: ONE TIME DOSE: 0-800 MICROGRAM
     Route: 002
     Dates: start: 20150527, end: 20150607
  2. FENTOS [Concomitant]
     Active Substance: FENTANYL
     Dosage: 10 MILLIGRAM DAILY;
     Route: 062
     Dates: start: 20150601, end: 20150706
  3. FENTOS [Concomitant]
     Active Substance: FENTANYL
     Indication: CANCER PAIN
     Dosage: 10 MILLIGRAM DAILY;
     Route: 062
     Dates: start: 20150601, end: 20150706
  4. E-FEN BUCCAL [Suspect]
     Active Substance: FENTANYL CITRATE
     Dosage: 200 MICROGRAM DAILY;
     Route: 002
     Dates: start: 20150608, end: 20150706
  5. E-FEN BUCCAL [Suspect]
     Active Substance: FENTANYL CITRATE
     Indication: BREAKTHROUGH PAIN
     Dosage: 200 MICROGRAM DAILY;
     Route: 002
     Dates: start: 20150526, end: 20150527
  6. FENTOS [Concomitant]
     Active Substance: FENTANYL
     Dosage: 8 MILLIGRAM DAILY;
     Route: 062
     Dates: start: 20150518, end: 20150531
  7. VOLTAREN [Concomitant]
     Active Substance: DICLOFENAC SODIUM
     Indication: CANCER PAIN
     Dosage: 50 MILLIGRAM DAILY;
     Route: 054
     Dates: start: 20150518

REACTIONS (1)
  - Colorectal cancer [Fatal]

NARRATIVE: CASE EVENT DATE: 20150706
